FAERS Safety Report 10220515 (Version 4)
Quarter: 2015Q1

REPORT INFORMATION
  Report Type: Spontaneous
  Country: US (occurrence: US)
  Receive Date: 20140606
  Receipt Date: 20150120
  Transmission Date: 20150720
  Serious: Yes (Life-Threatening, Hospitalization, Other)
  Sender: FDA-Public Use
  Company Number: US-BRISTOL-MYERS SQUIBB COMPANY-20572822

PATIENT
  Sex: Male
  Weight: 84 kg

DRUGS (1)
  1. COUMADIN [Suspect]
     Active Substance: WARFARIN SODIUM
     Indication: ATRIAL FIBRILLATION
     Dosage: UNK
     Route: 048
     Dates: start: 200409

REACTIONS (3)
  - Nephrolithiasis [Unknown]
  - Cerebrovascular accident [Unknown]
  - Renal haemorrhage [Unknown]

NARRATIVE: CASE EVENT DATE: 200409
